FAERS Safety Report 9661555 (Version 2)
Quarter: 2013Q4

REPORT INFORMATION
  Report Type: Spontaneous
  Country: US (occurrence: US)
  Receive Date: 20131031
  Receipt Date: 20131031
  Transmission Date: 20140711
  Serious: No
  Sender: FDA-Public Use
  Company Number: US-PURDUE-USA-2010-0054495

PATIENT
  Age: 55 Year
  Sex: Female
  Weight: 107.3 kg

DRUGS (11)
  1. OXYCONTIN (NDA 22-272) [Suspect]
     Indication: RHEUMATOID ARTHRITIS
     Dosage: 40 MG, TID
     Route: 048
     Dates: start: 20100914
  2. OXYCONTIN (NDA 22-272) [Suspect]
     Dosage: 20 MG, TID
     Route: 048
  3. SENOKOT [Concomitant]
     Indication: PRODUCT USED FOR UNKNOWN INDICATION
  4. LISINOPRIL [Concomitant]
     Indication: BLOOD PRESSURE
  5. ASAMANEX [Concomitant]
     Indication: CHRONIC OBSTRUCTIVE PULMONARY DISEASE
  6. ASPIRIN [Concomitant]
     Indication: PRODUCT USED FOR UNKNOWN INDICATION
     Dosage: 81 MG, UNK
  7. NEXIUM                             /01479302/ [Concomitant]
     Indication: PRODUCT USED FOR UNKNOWN INDICATION
  8. SINGULAIR [Concomitant]
     Indication: PRODUCT USED FOR UNKNOWN INDICATION
  9. FLEXERIL                           /00428402/ [Concomitant]
     Indication: MUSCLE RELAXANT THERAPY
  10. XANAX [Concomitant]
     Indication: PRODUCT USED FOR UNKNOWN INDICATION
  11. HALCION [Concomitant]
     Indication: INSOMNIA

REACTIONS (8)
  - Influenza like illness [Not Recovered/Not Resolved]
  - Pain [Not Recovered/Not Resolved]
  - Fatigue [Not Recovered/Not Resolved]
  - Local swelling [Not Recovered/Not Resolved]
  - Drug ineffective [Unknown]
  - Product quality issue [Unknown]
  - Wrong technique in drug usage process [Unknown]
  - Drug effect decreased [Unknown]
